FAERS Safety Report 14976611 (Version 1)
Quarter: 2018Q2

REPORT INFORMATION
  Report Type: Report from Study
  Country: US (occurrence: US)
  Receive Date: 20180605
  Receipt Date: 20180605
  Transmission Date: 20180711
  Serious: Yes (Other)
  Sender: FDA-Public Use
  Company Number: US-ACTELION-A-US2018-173390

PATIENT
  Age: 74 Year
  Sex: Female

DRUGS (29)
  1. IMBRUVICA [Suspect]
     Active Substance: IBRUTINIB
     Indication: WALDENSTROM^S MACROGLOBULINAEMIA
     Dosage: 420 MG, QD
     Route: 048
     Dates: start: 20180331
  2. ONDANSETRON [Concomitant]
     Active Substance: ONDANSETRON
  3. FUROSEMIDE. [Concomitant]
     Active Substance: FUROSEMIDE
  4. POTASSIUM [Concomitant]
     Active Substance: POTASSIUM
  5. ELIQUIS [Concomitant]
     Active Substance: APIXABAN
  6. VALSARTAN. [Concomitant]
     Active Substance: VALSARTAN
  7. SPIRIVA [Concomitant]
     Active Substance: TIOTROPIUM BROMIDE MONOHYDRATE
  8. KEFLEX [Concomitant]
     Active Substance: CEPHALEXIN
  9. VITAMIN C [Concomitant]
     Active Substance: ASCORBIC ACID
  10. COENZYME Q10 [Concomitant]
     Active Substance: UBIDECARENONE
  11. MUCINEX DM [Concomitant]
     Active Substance: DEXTROMETHORPHAN HYDROBROMIDE\GUAIFENESIN
  12. PROAIR HFA [Concomitant]
     Active Substance: ALBUTEROL SULFATE
  13. BENADRYL [Concomitant]
     Active Substance: DIPHENHYDRAMINE HYDROCHLORIDE
  14. FLUTICASONE. [Concomitant]
     Active Substance: FLUTICASONE
  15. ASPIRIN. [Concomitant]
     Active Substance: ASPIRIN
  16. ATENOLOL. [Concomitant]
     Active Substance: ATENOLOL
  17. LOVASTATIN. [Concomitant]
     Active Substance: LOVASTATIN
  18. ACYCLOVIR. [Concomitant]
     Active Substance: ACYCLOVIR
  19. COMBIVENT [Concomitant]
     Active Substance: ALBUTEROL SULFATE\IPRATROPIUM BROMIDE
  20. OPSUMIT [Suspect]
     Active Substance: MACITENTAN
     Indication: PRODUCT USED FOR UNKNOWN INDICATION
     Dosage: UNK
     Route: 048
     Dates: end: 201805
  21. LORAZEPAM. [Concomitant]
     Active Substance: LORAZEPAM
  22. ADCIRCA [Concomitant]
     Active Substance: TADALAFIL
  23. ADVAIR HFA [Concomitant]
     Active Substance: FLUTICASONE PROPIONATE\SALMETEROL XINAFOATE
  24. CALCIUM CITRATE [Concomitant]
     Active Substance: CALCIUM CITRATE
  25. VITAMIN D3 [Concomitant]
     Active Substance: CHOLECALCIFEROL
  26. MULTIVITAMINS [Concomitant]
     Active Substance: VITAMINS
  27. CLOBETASOL [Concomitant]
     Active Substance: CLOBETASOL
  28. TACROLIMUS. [Concomitant]
     Active Substance: TACROLIMUS
  29. BIFIDOBACTERIUM LACTIS [Concomitant]
     Active Substance: BIFIDOBACTERIUM ANIMALIS LACTIS

REACTIONS (2)
  - Atrial fibrillation [Unknown]
  - Dyspnoea [Unknown]
